FAERS Safety Report 20872892 (Version 1)
Quarter: 2022Q2

REPORT INFORMATION
  Report Type: Spontaneous
  Country: SH (occurrence: None)
  Receive Date: 20220525
  Receipt Date: 20220525
  Transmission Date: 20220721
  Serious: Yes (Disabling)
  Sender: FDA-Public Use
  Company Number: None

PATIENT
  Age: 37 Year
  Sex: Female
  Weight: 72 kg

DRUGS (6)
  1. ZICAM COLD REMEDY [Suspect]
     Active Substance: HOMEOPATHICS\ZINC ACETATE\ZINC GLUCONATE
     Indication: Nasopharyngitis
     Dosage: OTHER QUANTITY : 20 SINGLE NASAL SWABS;?FREQUENCY : 4 TIMES A DAY;?OTHER ROUTE : NASAL SWAB;?
     Route: 050
     Dates: start: 20220522, end: 20220524
  2. AFRIN [Concomitant]
     Active Substance: OXYMETAZOLINE
  3. IBUPROFEN [Concomitant]
     Active Substance: IBUPROFEN
  4. VITAMINS [Concomitant]
     Active Substance: VITAMINS
  5. IRON [Concomitant]
     Active Substance: IRON
  6. VITAMIN D NOS [Concomitant]
     Active Substance: VITAMIN D NOS

REACTIONS (3)
  - Drug ineffective [None]
  - Anosmia [None]
  - Taste disorder [None]

NARRATIVE: CASE EVENT DATE: 20220524
